FAERS Safety Report 24325984 (Version 1)
Quarter: 2024Q3

REPORT INFORMATION
  Report Type: Spontaneous
  Country: US (occurrence: US)
  Receive Date: 20240917
  Receipt Date: 20240917
  Transmission Date: 20241016
  Serious: No
  Sender: APOTEX
  Company Number: US-APOTEX-2024AP010430

PATIENT
  Age: 36 Year
  Sex: Female

DRUGS (7)
  1. ITRACONAZOLE [Suspect]
     Active Substance: ITRACONAZOLE
     Indication: Body tinea
     Dosage: 200 MILLIGRAM, QD
     Route: 048
  2. ITRACONAZOLE [Suspect]
     Active Substance: ITRACONAZOLE
     Dosage: 200 MILLIGRAM, QD
     Route: 048
  3. ITRACONAZOLE [Suspect]
     Active Substance: ITRACONAZOLE
     Dosage: 200 MILLIGRAM, BID
     Route: 048
  4. DESONIDE [Concomitant]
     Active Substance: DESONIDE
     Indication: Body tinea
     Dosage: UNK
     Route: 065
  5. KETOCONAZOLE [Concomitant]
     Active Substance: KETOCONAZOLE
     Indication: Body tinea
     Dosage: UNK
     Route: 065
  6. NYSTATIN [Concomitant]
     Active Substance: NYSTATIN
     Indication: Body tinea
     Dosage: UNK
     Route: 065
  7. GRISEOFULVIN MICRO [Concomitant]
     Indication: Body tinea
     Dosage: 500 MILLIGRAM, QD
     Route: 065

REACTIONS (2)
  - Drug resistance [Unknown]
  - Treatment noncompliance [Unknown]
